FAERS Safety Report 7083642-7 (Version None)
Quarter: 2010Q4

REPORT INFORMATION
  Report Type: 
  Country: None (occurrence: None)
  Receive Date: 20101103
  Receipt Date: 20101103
  Transmission Date: 20110411
  Serious: Yes (Other)
  Sender: FDA-Public Use
  Company Number: None

PATIENT
  Age: 15 Year
  Sex: Female
  Weight: 53.0709 kg

DRUGS (1)
  1. ORTHO EVRA [Suspect]
     Indication: MENSTRUATION IRREGULAR
     Dosage: APPLY ONE PATCH WEEKLY TRANSDERMAL
     Route: 062
     Dates: start: 20100825, end: 20100930

REACTIONS (3)
  - HEADACHE [None]
  - HYPOAESTHESIA [None]
  - VISUAL IMPAIRMENT [None]
